FAERS Safety Report 16308778 (Version 4)
Quarter: 2019Q3

REPORT INFORMATION
  Report Type: Spontaneous
  Country: US (occurrence: US)
  Receive Date: 20190514
  Receipt Date: 20190911
  Transmission Date: 20191004
  Serious: No
  Sender: FDA-Public Use
  Company Number: US-PFIZER INC-2019200371

PATIENT
  Age: 74 Year
  Sex: Male
  Weight: 85.73 kg

DRUGS (2)
  1. SILDENAFIL CITRATE. [Suspect]
     Active Substance: SILDENAFIL CITRATE
     Indication: SEXUAL ACTIVITY INCREASED
     Dosage: 100 MG, 1X/DAY
     Dates: start: 2018, end: 2018
  2. SILDENAFIL CITRATE. [Suspect]
     Active Substance: SILDENAFIL CITRATE
     Dosage: 200 MG, UNK (THE BOTTLE SAYS TAKE ONE DAILY. BUT I TAKE TWO EACH TIME)

REACTIONS (3)
  - Prescription drug used without a prescription [Unknown]
  - Intentional overdose [Unknown]
  - Drug ineffective [Not Recovered/Not Resolved]
